FAERS Safety Report 25550245 (Version 1)
Quarter: 2025Q3

REPORT INFORMATION
  Report Type: Spontaneous
  Country: KR (occurrence: KR)
  Receive Date: 20250714
  Receipt Date: 20250714
  Transmission Date: 20251021
  Serious: Yes (Other)
  Sender: MYLAN
  Company Number: KR-MYLANLABS-2025M1056996

PATIENT
  Sex: Male

DRUGS (16)
  1. LYRICA [Suspect]
     Active Substance: PREGABALIN
     Indication: Product used for unknown indication
     Dosage: 1 DOSAGE FORM, QD
     Dates: start: 20230220, end: 20230302
  2. LYRICA [Suspect]
     Active Substance: PREGABALIN
     Dosage: 1 DOSAGE FORM, QD
     Dates: start: 20230220, end: 20230302
  3. LYRICA [Suspect]
     Active Substance: PREGABALIN
     Dosage: 1 DOSAGE FORM, QD
     Route: 065
     Dates: start: 20230220, end: 20230302
  4. LYRICA [Suspect]
     Active Substance: PREGABALIN
     Dosage: 1 DOSAGE FORM, QD
     Route: 065
     Dates: start: 20230220, end: 20230302
  5. LYRICA [Suspect]
     Active Substance: PREGABALIN
  6. LYRICA [Suspect]
     Active Substance: PREGABALIN
  7. LYRICA [Suspect]
     Active Substance: PREGABALIN
     Route: 065
  8. LYRICA [Suspect]
     Active Substance: PREGABALIN
     Route: 065
  9. ACECLOFENAC [Suspect]
     Active Substance: ACECLOFENAC
     Indication: Product used for unknown indication
     Dates: start: 20230220, end: 20230302
  10. ACECLOFENAC [Suspect]
     Active Substance: ACECLOFENAC
     Dates: start: 20230220, end: 20230302
  11. ACECLOFENAC [Suspect]
     Active Substance: ACECLOFENAC
     Route: 065
     Dates: start: 20230220, end: 20230302
  12. ACECLOFENAC [Suspect]
     Active Substance: ACECLOFENAC
     Route: 065
     Dates: start: 20230220, end: 20230302
  13. ACECLOFENAC [Suspect]
     Active Substance: ACECLOFENAC
  14. ACECLOFENAC [Suspect]
     Active Substance: ACECLOFENAC
  15. ACECLOFENAC [Suspect]
     Active Substance: ACECLOFENAC
     Route: 065
  16. ACECLOFENAC [Suspect]
     Active Substance: ACECLOFENAC
     Route: 065

REACTIONS (3)
  - Erectile dysfunction [Not Recovered/Not Resolved]
  - Face oedema [Not Recovered/Not Resolved]
  - Oedema mouth [Not Recovered/Not Resolved]

NARRATIVE: CASE EVENT DATE: 20230224
